FAERS Safety Report 9048628 (Version 1)
Quarter: 2013Q1

REPORT INFORMATION
  Report Type: Spontaneous
  Country: US (occurrence: US)
  Receive Date: 20130204
  Receipt Date: 20130204
  Transmission Date: 20140127
  Serious: No
  Sender: FDA-Public Use
  Company Number: US-AMGEN-USASP2013000430

PATIENT
  Age: 59 Year
  Sex: Female

DRUGS (2)
  1. ENBREL [Suspect]
     Indication: RHEUMATOID ARTHRITIS
     Dosage: 25 MG, WEEKLY
     Dates: start: 20110727, end: 201212
  2. METHOTREXATE [Concomitant]
     Dosage: 25 MG, WEEKLY
     Route: 058
     Dates: start: 1993

REACTIONS (1)
  - Influenza [Not Recovered/Not Resolved]
